FAERS Safety Report 13158483 (Version 3)
Quarter: 2017Q4

REPORT INFORMATION
  Report Type: Report from Study
  Country: None (occurrence: DE)
  Receive Date: 20170127
  Receipt Date: 20171219
  Transmission Date: 20180320
  Serious: Yes (Disabling, Other)
  Sender: FDA-Public Use
  Company Number: DE-BIOVITRUM-2012DE0435

PATIENT
  Age: 3 Year
  Sex: Male
  Weight: 8 kg

DRUGS (3)
  1. ORFADIN [Suspect]
     Active Substance: NITISINONE
     Dates: start: 20160523, end: 20170515
  2. ORFADIN [Suspect]
     Active Substance: NITISINONE
     Dates: start: 20170516
  3. ORFADIN [Suspect]
     Active Substance: NITISINONE
     Indication: TYROSINAEMIA
     Dates: start: 20111219

REACTIONS (6)
  - Amino acid level increased [Recovered/Resolved]
  - Amino acid level decreased [Unknown]
  - Succinylacetone increased [Unknown]
  - Cognitive disorder [Unknown]
  - Autism spectrum disorder [Not Recovered/Not Resolved]
  - Drug level decreased [Not Recovered/Not Resolved]

NARRATIVE: CASE EVENT DATE: 20151207
